FAERS Safety Report 4678236-4 (Version None)
Quarter: 2005Q2

REPORT INFORMATION
  Report Type: 
  Country: None (occurrence: None)
  Receive Date: 20050527
  Receipt Date: 20050517
  Transmission Date: 20051028
  Serious: Yes (Disabling, Other)
  Sender: FDA-Public Use
  Company Number: 2005076909

PATIENT
  Age: 43 Year
  Sex: Male
  Weight: 94.3482 kg

DRUGS (7)
  1. ZOLOFT [Suspect]
     Indication: PANIC DISORDER
     Dosage: ORAL
     Route: 048
  2. GLUCOPHAGE [Concomitant]
  3. STARLIX [Concomitant]
  4. XANAX [Concomitant]
  5. CRESTOR [Concomitant]
  6. INSULIN [Concomitant]
  7. ALL OTHER THERAPEUTIC PRODUCTS [Concomitant]

REACTIONS (7)
  - AGGRESSION [None]
  - ANXIETY [None]
  - DISSOCIATION [None]
  - NEUROPATHY PERIPHERAL [None]
  - PANIC DISORDER [None]
  - RETINOPATHY [None]
  - TREATMENT NONCOMPLIANCE [None]
